FAERS Safety Report 14189431 (Version 5)
Quarter: 2018Q3

REPORT INFORMATION
  Report Type: Report from Study
  Country: None (occurrence: US)
  Receive Date: 20171115
  Receipt Date: 20180830
  Transmission Date: 20181010
  Serious: Yes (Other)
  Sender: FDA-Public Use
  Company Number: US-ABBVIE-17K-163-1836804-00

PATIENT
  Age: 63 Year
  Sex: Female

DRUGS (2)
  1. HUMIRA [Suspect]
     Active Substance: ADALIMUMAB
     Indication: RHEUMATOID ARTHRITIS
     Route: 058
     Dates: start: 20161228, end: 201709
  2. HUMIRA [Suspect]
     Active Substance: ADALIMUMAB
     Dosage: WEEKLY HUMIRA FOR 3 MONTHS
     Route: 058
     Dates: start: 20170929

REACTIONS (57)
  - Swelling [Recovering/Resolving]
  - Fatigue [Recovering/Resolving]
  - Joint noise [Unknown]
  - Hepatomegaly [Unknown]
  - Oedema [Unknown]
  - Hypoaesthesia [Unknown]
  - Arthropathy [Unknown]
  - Arthralgia [Recovering/Resolving]
  - Peripheral swelling [Unknown]
  - Neck pain [Recovering/Resolving]
  - Peripheral swelling [Recovering/Resolving]
  - Headache [Recovered/Resolved]
  - Diarrhoea [Recovered/Resolved]
  - Pain in extremity [Unknown]
  - Impaired healing [Unknown]
  - Joint range of motion decreased [Unknown]
  - Adhesion [Unknown]
  - Blood potassium decreased [Unknown]
  - Hepatic enzyme increased [Not Recovered/Not Resolved]
  - Myalgia [Unknown]
  - Peripheral swelling [Recovered/Resolved]
  - Arrhythmia [Unknown]
  - Joint effusion [Unknown]
  - Vision blurred [Unknown]
  - Anxiety [Unknown]
  - Abdominal pain upper [Recovered/Resolved]
  - Peripheral swelling [Not Recovered/Not Resolved]
  - Musculoskeletal pain [Unknown]
  - Mobility decreased [Unknown]
  - Joint stiffness [Recovering/Resolving]
  - Fall [Unknown]
  - Pain in extremity [Recovering/Resolving]
  - Drug ineffective [Unknown]
  - Oedema peripheral [Unknown]
  - Impaired self-care [Unknown]
  - Loss of personal independence in daily activities [Unknown]
  - Electrocardiogram abnormal [Unknown]
  - Injection site pain [Unknown]
  - Arthropod sting [Recovered/Resolved]
  - Diabetes mellitus [Unknown]
  - Headache [Recovered/Resolved]
  - Nasopharyngitis [Unknown]
  - Rheumatoid arthritis [Unknown]
  - Joint swelling [Not Recovered/Not Resolved]
  - Gait disturbance [Not Recovered/Not Resolved]
  - Skin lesion [Unknown]
  - Musculoskeletal stiffness [Recovering/Resolving]
  - Atrial fibrillation [Unknown]
  - Musculoskeletal pain [Recovering/Resolving]
  - Muscular weakness [Not Recovered/Not Resolved]
  - Pain [Unknown]
  - Therapeutic response shortened [Unknown]
  - Limb injury [Unknown]
  - Muscle spasms [Recovered/Resolved]
  - Headache [Recovered/Resolved]
  - Blood pressure increased [Unknown]
  - Arthralgia [Unknown]

NARRATIVE: CASE EVENT DATE: 201612
